FAERS Safety Report 6875587-X (Version None)
Quarter: 2010Q3

REPORT INFORMATION
  Report Type: 
  Country: None (occurrence: None)
  Receive Date: 20100727
  Receipt Date: 20100719
  Transmission Date: 20110219
  Serious: Yes (Hospitalization, Other)
  Sender: FDA-Public Use
  Company Number: US-JNJFOC-20100706077

PATIENT
  Sex: Female

DRUGS (5)
  1. SANDOZ FENTANYL TRANSDERMAL SYSTEM [Suspect]
     Indication: ARTHRITIS
     Route: 062
  2. UNSPECIFIED FENTANYL TRANSDERMAL SYSTEM [Suspect]
     Indication: ARTHRITIS
     Route: 062
  3. LYRICA [Concomitant]
     Route: 048
  4. MOBIC [Concomitant]
     Route: 048
  5. WATER PILL NOS [Concomitant]
     Route: 048

REACTIONS (7)
  - APPLICATION SITE PRURITUS [None]
  - ASTHENIA [None]
  - CARDIAC DISORDER [None]
  - DEPRESSION [None]
  - MYOCARDIAL INFARCTION [None]
  - PAIN [None]
  - PRODUCT ADHESION ISSUE [None]
